FAERS Safety Report 18762431 (Version 1)
Quarter: 2021Q1

REPORT INFORMATION
  Report Type: Spontaneous
  Country: CN (occurrence: CN)
  Receive Date: 20210120
  Receipt Date: 20210120
  Transmission Date: 20210419
  Serious: Yes (Hospitalization, Disabling, Other)
  Sender: FDA-Public Use
  Company Number: CN-ASTRAZENECA-2021A004863

PATIENT
  Age: 15973 Day
  Sex: Male
  Weight: 80 kg

DRUGS (4)
  1. TAGRISSO [Suspect]
     Active Substance: OSIMERTINIB
     Indication: LUNG ADENOCARCINOMA STAGE IV
     Route: 048
     Dates: start: 20201225, end: 20210107
  2. IRESSA [Suspect]
     Active Substance: GEFITINIB
     Indication: LUNG ADENOCARCINOMA
     Route: 048
     Dates: start: 20201215, end: 20201224
  3. COMPOUND GLYCYRRHIZIN [Concomitant]
     Indication: PROPHYLAXIS
     Dosage: 2 THREE TIMES A DAY
     Route: 048
  4. BICYCLOL [Concomitant]
     Active Substance: BICYCLOL
     Route: 048

REACTIONS (2)
  - Hyperpyrexia [Recovering/Resolving]
  - Liver injury [Unknown]

NARRATIVE: CASE EVENT DATE: 20201226
